FAERS Safety Report 16242185 (Version 1)
Quarter: 2019Q2

REPORT INFORMATION
  Report Type: Report from Study
  Country: ES (occurrence: ES)
  Receive Date: 20190426
  Receipt Date: 20190426
  Transmission Date: 20190711
  Serious: Yes (Death, Hospitalization, Other)
  Sender: FDA-Public Use
  Company Number: ES-ACCORD-124252

PATIENT
  Age: 72 Year
  Sex: Male

DRUGS (5)
  1. ATORVASTATIN/ATORVASTATIN CALCIUM [Suspect]
     Active Substance: ATORVASTATIN CALCIUM
     Indication: DYSLIPIDAEMIA
     Route: 048
     Dates: start: 20111125, end: 20181102
  2. RILUZOLE. [Concomitant]
     Active Substance: RILUZOLE
     Indication: AMYOTROPHIC LATERAL SCLEROSIS
     Route: 048
     Dates: end: 20181102
  3. PANTOPRAZOLE [Interacting]
     Active Substance: PANTOPRAZOLE
     Indication: PROPHYLAXIS
     Route: 048
     Dates: start: 20171010, end: 20181102
  4. WARFARIN [Interacting]
     Active Substance: WARFARIN
     Indication: CARDIAC VALVE PROSTHESIS USER
     Route: 048
     Dates: start: 20171010, end: 20181102
  5. VALSARTAN. [Concomitant]
     Active Substance: VALSARTAN
     Indication: HYPERTENSION
     Route: 048
     Dates: start: 20111125, end: 20181102

REACTIONS (2)
  - Haemorrhage intracranial [Fatal]
  - Drug interaction [Unknown]

NARRATIVE: CASE EVENT DATE: 20181102
